FAERS Safety Report 5115287-X (Version None)
Quarter: 2006Q3

REPORT INFORMATION
  Report Type: 
  Country: None (occurrence: None)
  Receive Date: 20060926
  Receipt Date: 20060920
  Transmission Date: 20061208
  Serious: Yes (Hospitalization)
  Sender: FDA-Public Use
  Company Number: IT-GLAXOSMITHKLINE-B0439439A

PATIENT
  Age: 53 Year
  Sex: Female

DRUGS (2)
  1. AUGMENTIN [Suspect]
     Dosage: 1G PER DAY
     Route: 048
     Dates: start: 20060827, end: 20060827
  2. BETAMETHASONE (SYSTEMIC) [Concomitant]
     Dosage: 4MG PER DAY
     Route: 042

REACTIONS (5)
  - ANAPHYLACTIC REACTION [None]
  - ERYTHEMA [None]
  - FACE OEDEMA [None]
  - HYPOTENSION [None]
  - PRURITUS [None]
